FAERS Safety Report 16392742 (Version 1)
Quarter: 2019Q2

REPORT INFORMATION
  Report Type: Spontaneous
  Country: JP (occurrence: JP)
  Receive Date: 20190605
  Receipt Date: 20190605
  Transmission Date: 20190711
  Serious: Yes (Other)
  Sender: FDA-Public Use
  Company Number: JP-GLAXOSMITHKLINE-JP2019JPN099331

PATIENT
  Age: 72 Year
  Sex: Male

DRUGS (3)
  1. INSULIN [Concomitant]
     Active Substance: INSULIN NOS
     Dosage: UNK
  2. SERETIDE [Suspect]
     Active Substance: FLUTICASONE PROPIONATE\SALMETEROL XINAFOATE
     Indication: ASTHMA
     Dosage: UNK, BID
     Route: 055
  3. SERETIDE [Suspect]
     Active Substance: FLUTICASONE PROPIONATE\SALMETEROL XINAFOATE
     Dosage: UNK, TID
     Route: 055

REACTIONS (11)
  - Asthma [Unknown]
  - Choking [Recovered/Resolved]
  - Intentional overdose [Unknown]
  - Malaise [Unknown]
  - Dyspnoea [Unknown]
  - Product use issue [Unknown]
  - Gastric cancer [Unknown]
  - Feeling abnormal [Recovered/Resolved]
  - Thermohyperaesthesia [Unknown]
  - Pneumonia [Unknown]
  - Therapeutic product effect incomplete [Unknown]
